FAERS Safety Report 21742020 (Version 1)
Quarter: 2022Q4

REPORT INFORMATION
  Report Type: Report from Study
  Country: GB (occurrence: GB)
  Receive Date: 20221216
  Receipt Date: 20221216
  Transmission Date: 20230112
  Serious: Yes (Death, Hospitalization, Congenital Anomaly, Other)
  Sender: FDA-Public Use
  Company Number: GB-009507513-2210GBR009955

PATIENT
  Age: 3 Month
  Sex: Male

DRUGS (87)
  1. CYANOCOBALAMIN [Suspect]
     Active Substance: CYANOCOBALAMIN
     Indication: Product used for unknown indication
     Dosage: UNK, THERAPY END DATE : NASK
     Route: 065
     Dates: start: 20100610
  2. CYANOCOBALAMIN [Suspect]
     Active Substance: CYANOCOBALAMIN
     Dosage: UNK, VITAMIN B12
     Route: 065
  3. EFAVIRENZ [Suspect]
     Active Substance: EFAVIRENZ
     Indication: Foetal exposure during pregnancy
     Dosage: UNK, MATERNAL DOSE: 1 UG/LITRE, QD (1 TABLET/CAPSULE)
     Route: 065
  4. EFAVIRENZ [Suspect]
     Active Substance: EFAVIRENZ
     Dosage: 1 DOSAGE FORMS DAILY; MATERNAL DOSE: 1 DOSAGE FORM, QD
     Route: 064
  5. EFAVIRENZ [Suspect]
     Active Substance: EFAVIRENZ
     Dosage: 1 DOSAGE FORMS DAILY; 1 FILM-COATED TABLET, QD
     Route: 064
  6. EFAVIRENZ [Suspect]
     Active Substance: EFAVIRENZ
     Dosage: 1 DOSAGE FORMS DAILY; 1 DOSAGE FORM, QD, (1 TABLET/CAPSULE, DAILY)
     Route: 064
  7. EFAVIRENZ [Suspect]
     Active Substance: EFAVIRENZ
     Dosage: 1 DOSAGE FORMS DAILY; MATERNAL DOSE: 1 DOSAGE FORM, QD
     Route: 064
  8. EMTRICITABINE\TENOFOVIR [Suspect]
     Active Substance: EMTRICITABINE\TENOFOVIR
     Indication: Product used for unknown indication
     Dosage: 1 DOSAGE FORMS DAILY; 1 DOSAGE FORM, QD, DURATION : 4 MONTHS
     Route: 065
     Dates: start: 20171006, end: 20180205
  9. FOLIC ACID [Suspect]
     Active Substance: FOLIC ACID
     Indication: Foetal exposure during pregnancy
     Dosage: 1 DOSAGE FORMS DAILY; (MATERNAL DOSE: 1 DF, QD (1 TABLET/CAPSULE, DAILY)
     Route: 065
  10. FOLIC ACID [Suspect]
     Active Substance: FOLIC ACID
     Indication: Foetal exposure during pregnancy
     Dosage: UNK
     Route: 064
  11. FOLIC ACID [Suspect]
     Active Substance: FOLIC ACID
     Dosage: UNK
     Route: 065
  12. FOLIC ACID [Suspect]
     Active Substance: FOLIC ACID
     Dosage: UNK
     Route: 065
  13. FOLIC ACID [Suspect]
     Active Substance: FOLIC ACID
     Dosage: 1 DOSAGE FORMS DAILY; 1 DOSAGE FORM, QD, MATERNAL DOSE
     Route: 064
  14. FOLIC ACID [Suspect]
     Active Substance: FOLIC ACID
     Dosage: MATERNAL DOSE: UNK
     Route: 064
  15. FOLIC ACID [Suspect]
     Active Substance: FOLIC ACID
     Dosage: MATERNAL DOSE: UNK
     Route: 064
  16. FOLIC ACID [Suspect]
     Active Substance: FOLIC ACID
     Dosage: UNK, SODIUM FOLATE
     Route: 065
  17. LAMIVUDINE [Suspect]
     Active Substance: LAMIVUDINE
     Indication: Foetal exposure during pregnancy
     Dosage: UNK
     Route: 065
  18. LAMIVUDINE [Suspect]
     Active Substance: LAMIVUDINE
     Indication: Antiretroviral therapy
     Dosage: 300 MILLIGRAM DAILY; 300 MG, QD, DURATION : 526 DAYS
     Route: 064
     Dates: start: 20090101, end: 20100610
  19. LAMIVUDINE [Suspect]
     Active Substance: LAMIVUDINE
     Indication: Foetal exposure during pregnancy
     Dosage: 300 MILLIGRAM DAILY; 300 MG, QD, DURATION : 526 DAYS
     Route: 064
     Dates: start: 20090101, end: 20100610
  20. LAMIVUDINE [Suspect]
     Active Substance: LAMIVUDINE
     Indication: Product used for unknown indication
     Dosage: MATERNAL DOSE: UNK, DURATION : 526 DAYS, UNIT DOSE : 300 MG
     Route: 064
     Dates: start: 20100610, end: 20100610
  21. METFORMIN [Suspect]
     Active Substance: METFORMIN HYDROCHLORIDE
     Indication: Product used for unknown indication
     Dosage: UNK, (MATERNAL DOSE: UNKNOWN)
     Route: 064
  22. METFORMIN [Suspect]
     Active Substance: METFORMIN HYDROCHLORIDE
     Indication: Foetal exposure during pregnancy
     Dosage: 400 MILLIGRAM DAILY; UNK, (MATERNAL DOSE: 400 MG, QD), DURATION : 526 DAYS
     Route: 064
     Dates: start: 20090101, end: 20100610
  23. METFORMIN [Suspect]
     Active Substance: METFORMIN HYDROCHLORIDE
     Indication: Foetal exposure during pregnancy
     Dosage: UNK, (MATERNAL DOSE: UNKNOWN)
     Route: 064
  24. METFORMIN [Suspect]
     Active Substance: METFORMIN HYDROCHLORIDE
     Indication: Product used for unknown indication
     Dosage: UNK, METFORMIN HYDROCHLORIDE
     Route: 065
  25. NEVIRAPINE [Suspect]
     Active Substance: NEVIRAPINE
     Indication: Product used for unknown indication
     Dosage: 400 MILLIGRAM DAILY; 400 MG, QD, (MATERNAL DOSE:400 MG, QD)), DURATION : 526 DAYS
     Route: 064
     Dates: start: 20090101, end: 20100610
  26. NEVIRAPINE [Suspect]
     Active Substance: NEVIRAPINE
     Indication: Product used for unknown indication
     Dosage: 400 MILLIGRAM DAILY; UNK, MATERNAL EXPOSURE: 400MG, QD, DURATION : 526 DAYS
     Route: 064
  27. NEVIRAPINE [Suspect]
     Active Substance: NEVIRAPINE
     Indication: Foetal exposure during pregnancy
  28. NEVIRAPINE [Suspect]
     Active Substance: NEVIRAPINE
     Indication: Foetal exposure during pregnancy
  29. TENOFOVIR DISOPROXIL [Suspect]
     Active Substance: TENOFOVIR DISOPROXIL
     Indication: Foetal exposure during pregnancy
     Dosage: UNK, THERAPY END DATE : NASK
     Route: 065
     Dates: start: 20100610
  30. TENOFOVIR DISOPROXIL [Suspect]
     Active Substance: TENOFOVIR DISOPROXIL
     Indication: Foetal exposure during pregnancy
     Dosage: 300 MILLIGRAM DAILY; 300 MILLIGRAM, QD
     Route: 064
  31. TENOFOVIR DISOPROXIL [Suspect]
     Active Substance: TENOFOVIR DISOPROXIL
     Dosage: UNIT DOSE : 1 DOSAGE FORMS, THERAPY END DATE : NASK
     Route: 065
     Dates: start: 20180205
  32. TENOFOVIR DISOPROXIL [Suspect]
     Active Substance: TENOFOVIR DISOPROXIL
     Dosage: 300 MILLIGRAM DAILY; UNK, (MATERNAL DOSE: 300 MG, QD), THERAPY END DATE : NASK
     Route: 064
     Dates: start: 20100610
  33. TENOFOVIR DISOPROXIL [Suspect]
     Active Substance: TENOFOVIR DISOPROXIL
     Dosage: UNK, TENOFOVIR DISOPROXIL FUMARATE
     Route: 065
  34. LOPINAVIR\RITONAVIR [Suspect]
     Active Substance: LOPINAVIR\RITONAVIR
     Indication: Foetal exposure during pregnancy
     Dosage: MATERNAL DOSE: UNK
     Route: 064
  35. LOPINAVIR\RITONAVIR [Suspect]
     Active Substance: LOPINAVIR\RITONAVIR
     Indication: HIV infection
     Dosage: MATERNAL DOSE: UNK
     Route: 064
  36. LOPINAVIR\RITONAVIR [Suspect]
     Active Substance: LOPINAVIR\RITONAVIR
     Indication: Product used for unknown indication
  37. LOPINAVIR\RITONAVIR [Suspect]
     Active Substance: LOPINAVIR\RITONAVIR
     Indication: HIV infection
  38. LOPINAVIR\RITONAVIR [Suspect]
     Active Substance: LOPINAVIR\RITONAVIR
     Indication: Product used for unknown indication
  39. LOPINAVIR\RITONAVIR [Suspect]
     Active Substance: LOPINAVIR\RITONAVIR
     Indication: Foetal exposure during pregnancy
  40. COBAMAMIDE [Suspect]
     Active Substance: COBAMAMIDE
     Indication: Product used for unknown indication
     Dosage: UNK, (MATERNAL DOSE: UNK )
     Route: 065
  41. EMTRICITABINE [Suspect]
     Active Substance: EMTRICITABINE
     Indication: HIV infection
     Dosage: 1 DOSAGE FORMS DAILY; UNK, (MATERNAL DOSE: 1 DOSAGE FORM, QD)
     Route: 064
  42. EMTRICITABINE [Suspect]
     Active Substance: EMTRICITABINE
     Indication: Product used for unknown indication
     Dosage: 1 DOSAGE FORMS DAILY; UNK, (MATERNAL DOSE: 1 DOSAGE FORM, QD, (1 TABLET/CAPSULE, QD))
     Route: 064
  43. EMTRICITABINE [Suspect]
     Active Substance: EMTRICITABINE
     Indication: Product used for unknown indication
     Dosage: 1 DOSAGE FORMS DAILY; 1 DOSAGE FORM, QD, THERAPY END DATE : NASK
     Route: 064
     Dates: start: 20171006
  44. EMTRICITABINE [Suspect]
     Active Substance: EMTRICITABINE
     Indication: HIV infection
     Dosage: 1 DOSAGE FORMS DAILY; UNK, (MATERNAL DOSE: 1 DOSAGE FORM, QD)
     Route: 064
  45. EMTRICITABINE [Suspect]
     Active Substance: EMTRICITABINE
     Dosage: 1 DOSAGE FORMS DAILY; UNK, (MATERNAL DOSE: 1 DOSAGE FORM, QD)
     Route: 064
  46. EMTRICITABINE [Suspect]
     Active Substance: EMTRICITABINE
     Dosage: 1 DOSAGE FORMS DAILY; 1 DOSAGE FORM, QD, (1 TABLET/CAPSULE, QD), THERAPY END DATE : NASK
     Route: 064
     Dates: start: 20180205
  47. INSULIN ASPART [Suspect]
     Active Substance: INSULIN ASPART
     Indication: Product used for unknown indication
     Route: 065
  48. ISENTRESS [Suspect]
     Active Substance: RALTEGRAVIR POTASSIUM
     Indication: Product used for unknown indication
     Dosage: 3200 MILLIGRAM DAILY; UNK, (MATERNAL DOSE: 3200 MG, QD (800 MILLIGRAM, QID))
     Route: 064
  49. ISENTRESS [Suspect]
     Active Substance: RALTEGRAVIR POTASSIUM
     Dosage: 3200 MILLIGRAM DAILY; UNK, (MATERNAL DOSE: 3200 MG, QD (800 MILLIGRAM, QID)), THERAPY END DATE : NAS
     Route: 064
     Dates: start: 20100610
  50. ISENTRESS [Suspect]
     Active Substance: RALTEGRAVIR POTASSIUM
     Dosage: 3200 MILLIGRAM DAILY; 3200 MG, QD (800 MILLIGRAM, QID)
     Route: 064
  51. ISENTRESS [Suspect]
     Active Substance: RALTEGRAVIR POTASSIUM
     Dosage: 3200 MILLIGRAM DAILY; 800 MG, Q6H
     Route: 064
  52. KALETRA [Suspect]
     Active Substance: LOPINAVIR\RITONAVIR
     Indication: Foetal exposure during pregnancy
     Dosage: MATERNAL DOSE: UNK, THERAPY END DATE : NASK
     Route: 064
     Dates: start: 20100610
  53. KALETRA [Suspect]
     Active Substance: LOPINAVIR\RITONAVIR
     Indication: Foetal exposure during pregnancy
     Dosage: UNK, (MATERNAL DOSE: UNKNOWN)
     Route: 064
  54. KALETRA [Suspect]
     Active Substance: LOPINAVIR\RITONAVIR
     Indication: Product used for unknown indication
  55. KALETRA [Suspect]
     Active Substance: LOPINAVIR\RITONAVIR
     Indication: Product used for unknown indication
  56. LABETALOL [Suspect]
     Active Substance: LABETALOL\LABETALOL HYDROCHLORIDE
     Indication: Foetal exposure during pregnancy
     Dosage: MATERNAL DOSE: 300 MG, DURATION : 526 DAYS
     Route: 064
     Dates: start: 20090101, end: 20100610
  57. LABETALOL [Suspect]
     Active Substance: LABETALOL\LABETALOL HYDROCHLORIDE
     Indication: Product used for unknown indication
     Dosage: 300 MG, (MATERNAL DOSE: 300 MG)
     Route: 064
  58. LABETALOL [Suspect]
     Active Substance: LABETALOL\LABETALOL HYDROCHLORIDE
     Indication: Product used for unknown indication
     Dosage: UNK
     Route: 064
  59. LABETALOL [Suspect]
     Active Substance: LABETALOL\LABETALOL HYDROCHLORIDE
     Indication: Foetal exposure during pregnancy
  60. LOPINAVIR [Suspect]
     Active Substance: LOPINAVIR
     Indication: Antiviral treatment
     Dosage: UNK, (MATERNAL DOSE: UNK), THERAPY END DATE : NASK
     Route: 064
     Dates: start: 20100610
  61. LOPINAVIR [Suspect]
     Active Substance: LOPINAVIR
     Indication: Foetal exposure during pregnancy
     Dosage: THERAPY END DATE : NASK
     Route: 064
     Dates: start: 20100610
  62. LOPINAVIR [Suspect]
     Active Substance: LOPINAVIR
     Indication: Product used for unknown indication
  63. LOPINAVIR [Suspect]
     Active Substance: LOPINAVIR
     Indication: Product used for unknown indication
  64. INSULIN ASPART [Suspect]
     Active Substance: INSULIN ASPART
     Indication: Maternal exposure timing unspecified
     Dosage: UNK, (MATERNAL DOSE: UNKNOWN)
     Route: 064
  65. INSULIN ASPART [Suspect]
     Active Substance: INSULIN ASPART
     Indication: Foetal exposure during pregnancy
  66. INSULIN ASPART [Suspect]
     Active Substance: INSULIN ASPART
     Indication: Maternal exposure timing unspecified
  67. INSULIN ASPART [Suspect]
     Active Substance: INSULIN ASPART
     Indication: Foetal exposure during pregnancy
  68. INSULIN ASPART [Suspect]
     Active Substance: INSULIN ASPART
     Indication: Product used for unknown indication
  69. INSULIN ASPART [Suspect]
     Active Substance: INSULIN ASPART
     Indication: Product used for unknown indication
  70. RITONAVIR [Suspect]
     Active Substance: RITONAVIR
     Indication: Antiviral treatment
     Dosage: UNK, MATERNAL DOSE: UNK
     Route: 064
  71. RITONAVIR [Suspect]
     Active Substance: RITONAVIR
     Dosage: UNK, MATERNAL DOSE: UNK, THERAPY END DATE : NASK
     Route: 065
     Dates: start: 20100610
  72. EFAVIRENZ [Suspect]
     Active Substance: EFAVIRENZ
     Indication: Foetal exposure during pregnancy
     Dosage: 1 DOSAGE FORMS DAILY; 1 DOSAGE FORM, QD, (MATERNAL DOSE: 1 DOSAGE FORM, QD; 1 TABLET/CAPSULE,DAILY
     Route: 064
  73. EFAVIRENZ [Suspect]
     Active Substance: EFAVIRENZ
     Dosage: FREQUENCY : 1, FREQUENCY TIME : 1 DAYS
     Route: 064
  74. EFAVIRENZ [Suspect]
     Active Substance: EFAVIRENZ
     Dosage: 1 DOSAGE FORMS DAILY; UNK, (MATERNAL DOSE: 1 DOSAGE FORM, QD (1 TABLET/CAPSULE, DAILY)
     Route: 064
  75. EFAVIRENZ [Suspect]
     Active Substance: EFAVIRENZ
     Dosage: 1 DOSAGE FORMS DAILY; 1 DOSAGE FORM, QD, (MATERNAL DOSE: 1 DOSAGE FORM, QD)
     Route: 064
  76. EFAVIRENZ [Suspect]
     Active Substance: EFAVIRENZ
     Dosage: UNK, MATERNAL DOSE: 1 UG/LITER, QD (1TABLET,CAPSULE), DURATION : 4 MONTHS
     Route: 064
     Dates: start: 20171006, end: 20180205
  77. TRUVADA [Suspect]
     Active Substance: EMTRICITABINE\TENOFOVIR DISOPROXIL FUMARATE
     Indication: Foetal exposure during pregnancy
     Dosage: 1 DOSAGE FORMS DAILY; 1 DOSAGE FORM, QD, (MATERNAL DOSE), DURATION : 122 DAYS
     Route: 064
  78. TRUVADA [Suspect]
     Active Substance: EMTRICITABINE\TENOFOVIR DISOPROXIL FUMARATE
     Indication: HIV infection
     Dosage: 1 DOSAGE FORMS DAILY; 1 DOSAGE FORM, QD, (MATERNAL DOSE), DURATION : 122 DAYS
     Route: 064
     Dates: start: 20171006, end: 20180205
  79. TRUVADA [Suspect]
     Active Substance: EMTRICITABINE\TENOFOVIR DISOPROXIL FUMARATE
     Indication: Supplementation therapy
     Route: 065
  80. TRUVADA [Suspect]
     Active Substance: EMTRICITABINE\TENOFOVIR DISOPROXIL FUMARATE
     Indication: Foetal exposure during pregnancy
     Route: 065
  81. TRUVADA [Suspect]
     Active Substance: EMTRICITABINE\TENOFOVIR DISOPROXIL FUMARATE
     Indication: Foetal exposure during pregnancy
     Dosage: 1 DOSAGE FORMS DAILY; 1 DOSAGE FORM, QD, (THERAPY START DATE: 06-OCT-2017), THERAPY END DATE : NASK
     Route: 064
     Dates: start: 20171006
  82. TRUVADA [Suspect]
     Active Substance: EMTRICITABINE\TENOFOVIR DISOPROXIL FUMARATE
     Indication: HIV infection
     Dosage: 1 DOSAGE FORMS DAILY; 1 DOSAGE FORM, QD (MATERNAL DOSE)
     Route: 064
  83. ZIDOVUDINE [Suspect]
     Active Substance: ZIDOVUDINE
     Indication: Foetal exposure during pregnancy
     Dosage: 600 MILLIGRAM DAILY; 600 MILLIGRAM, QD, DURATION : 517 DAYS
     Route: 064
     Dates: start: 20090110, end: 20100610
  84. ZIDOVUDINE [Suspect]
     Active Substance: ZIDOVUDINE
     Indication: Antiviral treatment
     Dosage: 800 MILLIGRAM DAILY; 800 MILLIGRAM, QD, DURATION : 1 DAYS
     Route: 064
     Dates: start: 20100610, end: 20100610
  85. ZIDOVUDINE [Suspect]
     Active Substance: ZIDOVUDINE
     Indication: Product used for unknown indication
     Dosage: 600 MILLIGRAM DAILY; 600 MG, QD, (MATERNAL DOSE: 600 MG, QD)
     Route: 064
  86. ZIDOVUDINE [Suspect]
     Active Substance: ZIDOVUDINE
     Indication: Foetal exposure during pregnancy
     Dosage: 600 MILLIGRAM DAILY; UNK, (MATERNAL DOSE: 600 MG, QD ), DURATION : 517 DAYS
     Route: 064
  87. ZIDOVUDINE [Suspect]
     Active Substance: ZIDOVUDINE
     Dosage: 800 MILLIGRAM DAILY; UNK, (MATERNAL DOSE: 800 MG, QD)
     Route: 064

REACTIONS (10)
  - Cleft lip and palate [Fatal]
  - Hepatic cytolysis [Fatal]
  - Ultrasound antenatal screen [Fatal]
  - Aspartate aminotransferase increased [Fatal]
  - Hydrops foetalis [Fatal]
  - Alanine aminotransferase increased [Fatal]
  - Trisomy 18 [Fatal]
  - Abortion spontaneous [Fatal]
  - Foetal exposure during pregnancy [Fatal]
  - Off label use [Fatal]

NARRATIVE: CASE EVENT DATE: 20171006
